FAERS Safety Report 20643599 (Version 1)
Quarter: 2022Q1

REPORT INFORMATION
  Report Type: Spontaneous
  Country: US (occurrence: US)
  Receive Date: 20220328
  Receipt Date: 20220328
  Transmission Date: 20220423
  Serious: No
  Sender: FDA-Public Use
  Company Number: US-GW PHARMA-202203USGW01478

PATIENT
  Sex: Male

DRUGS (1)
  1. EPIDIOLEX [Suspect]
     Active Substance: CANNABIDIOL
     Indication: Idiopathic generalised epilepsy
     Dosage: 150 MILLIGRAM (REDOSED A FEW TIMES)
     Route: 048
     Dates: start: 20201216

REACTIONS (3)
  - Gastroenteritis viral [Unknown]
  - Incorrect dose administered [Unknown]
  - Product use in unapproved indication [Unknown]
